FAERS Safety Report 9684263 (Version 1)
Quarter: 2013Q4

REPORT INFORMATION
  Report Type: Spontaneous
  Country: US (occurrence: US)
  Receive Date: 20131112
  Receipt Date: 20131112
  Transmission Date: 20140711
  Serious: Yes (Hospitalization)
  Sender: FDA-Public Use
  Company Number: US-UCBSA-102731

PATIENT
  Sex: Female
  Weight: 68.3 kg

DRUGS (16)
  1. KEPPRA [Suspect]
     Indication: CONVULSION
     Dosage: STRENGTH: 500 MG, 10/DAILY, 1500 MG MORNING AND AFTERNOON, 1750 MG AT NIGHT
  2. FOLIC ACID [Concomitant]
     Dosage: 1 MG DAILY
  3. TRILEPTAL [Concomitant]
     Dosage: STRENGTH: 150 MG, 600 MG MORNING, 450 MG AFTERNOON AND 600 MG MG AT NIGHT
  4. LAMICTAL [Concomitant]
     Route: 048
     Dates: start: 20090727
  5. LAMICTAL [Concomitant]
     Dosage: STRENGTH: 100 MG, 1/2 TABLET
     Route: 048
  6. MIDAZOLAM [Concomitant]
     Indication: CONVULSION
     Dosage: 10 MG/2 ML (2ML=10 MG SPRAYED NASALLY)
  7. PYRIDOXINE [Concomitant]
     Dosage: 100 MG DAILY
  8. RIBOFLAVIN [Concomitant]
  9. ATIVAN [Concomitant]
     Indication: VOMITING
     Dosage: 2 MG TABLET, 1/2 TO 1 TABLET EVERY 12 HOURS
     Route: 048
  10. ATIVAN [Concomitant]
     Indication: CONVULSION
     Dosage: 2 MG TABLET, 1/2 TO 1 TABLET EVERY 12 HOURS
     Route: 048
  11. RELPAX [Concomitant]
     Indication: HEADACHE
     Dosage: STRENGTH: 10MG, 1 TABLET
     Route: 048
  12. CEFTIN [Concomitant]
     Indication: EAR INFECTION
  13. ZITHROMAX [Concomitant]
  14. CIPROFLOXACIN [Concomitant]
  15. CEFTRIAXONE [Concomitant]
     Route: 042
  16. BACTRIM [Concomitant]

REACTIONS (7)
  - Convulsion [Recovered/Resolved]
  - Pyelonephritis [Unknown]
  - Dizziness [Not Recovered/Not Resolved]
  - Diplopia [Not Recovered/Not Resolved]
  - Distractibility [Unknown]
  - Memory impairment [Unknown]
  - Overdose [Unknown]
